FAERS Safety Report 9696874 (Version 2)
Quarter: 2013Q4

REPORT INFORMATION
  Report Type: Spontaneous
  Country: US (occurrence: US)
  Receive Date: 20131119
  Receipt Date: 20131119
  Transmission Date: 20140711
  Serious: Yes (Hospitalization)
  Sender: FDA-Public Use
  Company Number: US-GILEAD-2007-0013688

PATIENT
  Age: 70 Year
  Sex: Female
  Weight: 65.77 kg

DRUGS (17)
  1. LETAIRIS [Suspect]
     Indication: PULMONARY ARTERIAL HYPERTENSION
     Route: 048
     Dates: start: 20070830, end: 20071003
  2. OXYGEN [Concomitant]
     Dosage: CONTINUOUS
     Route: 055
  3. LOMOTIL [Concomitant]
     Route: 048
  4. LASIX [Concomitant]
     Route: 048
  5. COUMADIN [Concomitant]
     Route: 048
  6. METOPROLOL [Concomitant]
     Route: 048
  7. FLOLAN [Concomitant]
     Indication: PULMONARY ARTERIAL HYPERTENSION
     Dosage: CONTINUOUS
     Route: 042
  8. LOVASTATIN [Concomitant]
     Route: 048
  9. TYLENOL [Concomitant]
     Route: 048
  10. ADVAIR [Concomitant]
     Route: 055
  11. CALCIUM + D [Concomitant]
     Route: 048
  12. ACTONEL [Concomitant]
     Route: 048
  13. PROTONIX [Concomitant]
     Route: 048
  14. MULTIVITAMIN [Concomitant]
     Route: 048
  15. SYNTHROID [Concomitant]
     Route: 048
  16. ZOLOFT [Concomitant]
     Route: 048
  17. BUSPAR [Concomitant]
     Route: 048

REACTIONS (1)
  - Oedema [Unknown]
